FAERS Safety Report 15783130 (Version 1)
Quarter: 2019Q1

REPORT INFORMATION
  Report Type: Spontaneous
  Country: SE (occurrence: SE)
  Receive Date: 20190102
  Receipt Date: 20190102
  Transmission Date: 20190417
  Serious: Yes (Other)
  Sender: FDA-Public Use
  Company Number: SE-TEVA-2018-SE-994254

PATIENT
  Age: 39 Year
  Sex: Female

DRUGS (4)
  1. VENLAFAXINE [Suspect]
     Active Substance: VENLAFAXINE HYDROCHLORIDE
     Dosage: 112.5 MILLIGRAM DAILY;
     Dates: start: 20181018, end: 20181112
  2. FOLACIN [Concomitant]
  3. VENLAFAXINE [Suspect]
     Active Substance: VENLAFAXINE HYDROCHLORIDE
     Route: 048
     Dates: start: 20181017
  4. LERGIGAN [Concomitant]

REACTIONS (7)
  - Libido decreased [Unknown]
  - Mental impairment [Unknown]
  - Anorgasmia [Unknown]
  - Emotional poverty [Unknown]
  - Dizziness [Unknown]
  - Abnormal dreams [Unknown]
  - Headache [Unknown]

NARRATIVE: CASE EVENT DATE: 2018
